FAERS Safety Report 5501929-3 (Version None)
Quarter: 2007Q4

REPORT INFORMATION
  Report Type: 
  Country: None (occurrence: None)
  Receive Date: 20071022
  Receipt Date: 20070808
  Transmission Date: 20080405
  Serious: No
  Sender: FDA-Public Use
  Company Number: SPV1-2007-03797

PATIENT
  Age: 8 Year
  Sex: Male
  Weight: 23.6 kg

DRUGS (2)
  1. VYVANSE [Suspect]
     Indication: ATTENTION DEFICIT/HYPERACTIVITY DISORDER
     Dosage: 30 MG, ONE DOSE, ORAL : ORAL
     Route: 048
     Dates: start: 20070807, end: 20070807
  2. VYVANSE [Suspect]
     Indication: ATTENTION DEFICIT/HYPERACTIVITY DISORDER
     Dosage: 30 MG, ONE DOSE, ORAL : ORAL
     Route: 048
     Dates: start: 20070807

REACTIONS (2)
  - INSOMNIA [None]
  - RESTLESSNESS [None]
